FAERS Safety Report 6603842-7 (Version None)
Quarter: 2010Q1

REPORT INFORMATION
  Report Type: 
  Country: None (occurrence: None)
  Receive Date: 20100226
  Receipt Date: 20090212
  Transmission Date: 20100710
  Serious: No
  Sender: FDA-Public Use
  Company Number: A0769341A

PATIENT
  Age: 43 Year
  Sex: Male
  Weight: 72.7 kg

DRUGS (4)
  1. LAMICTAL CD [Suspect]
     Indication: DRUG USE FOR UNKNOWN INDICATION
     Dosage: 200MG TWICE PER DAY
     Route: 048
     Dates: start: 20090123
  2. DAYTRANA [Suspect]
     Indication: DRUG USE FOR UNKNOWN INDICATION
     Dosage: 30MG PER DAY
     Route: 062
     Dates: start: 20081001
  3. CONCERTA [Concomitant]
  4. AMITRIPTYLINE HCL [Concomitant]

REACTIONS (2)
  - OFF LABEL USE [None]
  - RASH GENERALISED [None]
